FAERS Safety Report 5955330-9 (Version None)
Quarter: 2008Q4

REPORT INFORMATION
  Report Type: 
  Country: None (occurrence: None)
  Receive Date: 20081031
  Receipt Date: 20080714
  Transmission Date: 20090506
  Serious: No
  Sender: FDA-Public Use
  Company Number: 2008PV036153

PATIENT
  Age: 56 Year
  Sex: Female

DRUGS (4)
  1. SYMLIN [Suspect]
     Indication: TYPE 1 DIABETES MELLITUS
     Dosage: 30 MCG; TID; SC, 15 MCG; TID; SC
     Route: 058
     Dates: start: 20080712, end: 20080712
  2. SYMLIN [Suspect]
     Indication: TYPE 1 DIABETES MELLITUS
     Dosage: 30 MCG; TID; SC, 15 MCG; TID; SC
     Route: 058
     Dates: start: 20080713
  3. INSULIN DETEMIR [Concomitant]
  4. APIDRA [Concomitant]

REACTIONS (1)
  - BLOOD GLUCOSE INCREASED [None]
